FAERS Safety Report 10796065 (Version 2)
Quarter: 2015Q1

REPORT INFORMATION
  Report Type: Spontaneous
  Country: FR (occurrence: FR)
  Receive Date: 20150216
  Receipt Date: 20150219
  Transmission Date: 20150721
  Serious: Yes (Death)
  Sender: FDA-Public Use
  Company Number: FR-ROCHE-1538189

PATIENT
  Age: 65 Year
  Sex: Male
  Weight: 83 kg

DRUGS (4)
  1. ASPIRIN. [Suspect]
     Active Substance: ASPIRIN
     Indication: ACUTE CORONARY SYNDROME
     Dosage: 75 MG (75 MG,1 IN 1 D)
     Route: 065
  2. ACTILYSE [Suspect]
     Active Substance: ALTEPLASE
     Indication: CEREBROVASCULAR ACCIDENT
     Dosage: BOLUS.
     Route: 040
  3. TICAGRELOR [Suspect]
     Active Substance: TICAGRELOR
     Indication: ACUTE CORONARY SYNDROME
     Dosage: 180 MG (90 MG,2 IN 1 D)
     Route: 065
  4. ACTILYSE [Suspect]
     Active Substance: ALTEPLASE
     Dosage: 67-MG INFUSION ADMINISTERED OVER A 60-MINUTE PERIOD
     Route: 042

REACTIONS (3)
  - Hydrocephalus [Fatal]
  - Intracranial haematoma [Fatal]
  - Intraventricular haemorrhage [Fatal]
